FAERS Safety Report 24296114 (Version 3)
Quarter: 2025Q1

REPORT INFORMATION
  Report Type: Spontaneous
  Country: US (occurrence: US)
  Receive Date: 20240909
  Receipt Date: 20250305
  Transmission Date: 20250409
  Serious: Yes (Other)
  Sender: BRISTOL-MYERS SQUIBB COMPANY
  Company Number: US-BRISTOL-MYERS SQUIBB COMPANY-2024-141932

PATIENT
  Age: 79 Year
  Sex: Female

DRUGS (2)
  1. POMALYST [Suspect]
     Active Substance: POMALIDOMIDE
     Indication: Plasma cell myeloma
     Dosage: DAILY
     Route: 048
  2. POMALYST [Suspect]
     Active Substance: POMALIDOMIDE
     Dosage: QD FOR 21 DAYS ON 7 DAYS OFF/ 21 ON 7 OFF
     Route: 048

REACTIONS (9)
  - Diarrhoea [Unknown]
  - Abdominal pain upper [Unknown]
  - Fatigue [Unknown]
  - Neuropathy peripheral [Not Recovered/Not Resolved]
  - Constipation [Unknown]
  - Blood glucose increased [Unknown]
  - Blood pressure increased [Unknown]
  - Night sweats [Unknown]
  - Hyperglycaemia [Unknown]
